FAERS Safety Report 15197694 (Version 1)
Quarter: 2018Q3

REPORT INFORMATION
  Report Type: Spontaneous
  Country: US (occurrence: US)
  Receive Date: 20180725
  Receipt Date: 20180725
  Transmission Date: 20181010
  Serious: No
  Sender: FDA-Public Use
  Company Number: US-ABBVIE-17S-163-2203728-00

PATIENT
  Sex: Female
  Weight: 77 kg

DRUGS (6)
  1. LIOTHYRONINE [Suspect]
     Active Substance: LIOTHYRONINE
     Indication: BLOOD THYROID STIMULATING HORMONE INCREASED
     Dosage: 5 ?G, QD
     Route: 048
     Dates: start: 2016, end: 201704
  2. KLONOPIN [Concomitant]
     Active Substance: CLONAZEPAM
     Indication: PRODUCT USED FOR UNKNOWN INDICATION
     Dosage: UNK
     Route: 065
  3. LEVOTHYROXINE. [Suspect]
     Active Substance: LEVOTHYROXINE
     Dosage: 137 ?G, QD
     Route: 048
     Dates: start: 201705
  4. METOPROLOL XL SANDOZ [Concomitant]
     Active Substance: METOPROLOL SUCCINATE
     Indication: PRODUCT USED FOR UNKNOWN INDICATION
     Dosage: 25 MG, UNK
     Route: 065
  5. LEVOTHYROXINE. [Suspect]
     Active Substance: LEVOTHYROXINE
     Indication: PRODUCT USED FOR UNKNOWN INDICATION
     Dosage: 137 ?G, QD
     Route: 048
     Dates: start: 201701, end: 201705
  6. LIOTHYRONINE [Suspect]
     Active Substance: LIOTHYRONINE
     Dosage: UNK
     Route: 048
     Dates: start: 20171101

REACTIONS (2)
  - Food allergy [Not Recovered/Not Resolved]
  - Acne [Unknown]

NARRATIVE: CASE EVENT DATE: 2017
